FAERS Safety Report 21815271 (Version 2)
Quarter: 2023Q2

REPORT INFORMATION
  Report Type: Report from Study
  Country: US (occurrence: US)
  Receive Date: 20230104
  Receipt Date: 20230525
  Transmission Date: 20230721
  Serious: No
  Sender: FDA-Public Use
  Company Number: US-ABBVIE-4226901

PATIENT
  Sex: Female

DRUGS (2)
  1. HUMIRA [Suspect]
     Active Substance: ADALIMUMAB
     Indication: Rheumatoid arthritis
     Dosage: CF, FORM STRENGTH 40MG
     Route: 058
     Dates: start: 20150430
  2. HUMIRA [Suspect]
     Active Substance: ADALIMUMAB
     Dosage: CF, FORM STRENGTH 40MG
     Route: 058

REACTIONS (3)
  - Gout [Recovered/Resolved]
  - Carpal tunnel syndrome [Recovering/Resolving]
  - Influenza [Recovered/Resolved]
